FAERS Safety Report 21440352 (Version 1)
Quarter: 2022Q4

REPORT INFORMATION
  Report Type: Spontaneous
  Country: US (occurrence: US)
  Receive Date: 20221011
  Receipt Date: 20221011
  Transmission Date: 20230112
  Serious: Yes (Other)
  Sender: FDA-Public Use
  Company Number: US-AMNEAL PHARMACEUTICALS-2021-AMRX-05243

PATIENT
  Sex: Male

DRUGS (3)
  1. LIORESAL [Suspect]
     Active Substance: BACLOFEN
     Dosage: 1000 ?G, \DAY
     Route: 037
  2. LIORESAL [Suspect]
     Active Substance: BACLOFEN
     Dosage: UNK; INCREASED DOSE OVER TIME (UNSPECIFIED)
     Route: 037
     Dates: end: 20211216
  3. LIORESAL [Suspect]
     Active Substance: BACLOFEN
     Dosage: 100 ?G, \DAY
     Route: 037
     Dates: start: 20211216

REACTIONS (2)
  - Therapy non-responder [Recovered/Resolved]
  - Complication associated with device [Recovered/Resolved]
